FAERS Safety Report 7391807-X (Version None)
Quarter: 2011Q2

REPORT INFORMATION
  Report Type: 
  Country: None (occurrence: None)
  Receive Date: 20110404
  Receipt Date: 20110322
  Transmission Date: 20111010
  Serious: No
  Sender: FDA-Public Use
  Company Number: PE-ROCHE-766974

PATIENT
  Sex: Female
  Weight: 49 kg

DRUGS (3)
  1. AMIKACIN [Concomitant]
     Dosage: DOSAGE REGIMEN: BIS
     Route: 042
     Dates: start: 20110302, end: 20110307
  2. YASMIN [Concomitant]
     Indication: CONTRACEPTION
     Route: 065
  3. ISOTRETINOIN [Suspect]
     Route: 065

REACTIONS (2)
  - NO ADVERSE EVENT [None]
  - PREGNANCY [None]
